FAERS Safety Report 7215440-5 (Version None)
Quarter: 2010Q4

REPORT INFORMATION
  Report Type: 
  Country: None (occurrence: None)
  Receive Date: 20101230
  Receipt Date: 20101221
  Transmission Date: 20110411
  Serious: Yes (Other)
  Sender: FDA-Public Use
  Company Number: UTKAB-10-0745

PATIENT
  Age: 55 Year
  Sex: Male

DRUGS (5)
  1. ABRAXANE [Suspect]
     Indication: CHEMOTHERAPY
     Dosage: (160 MG), INTRAVENOUS
     Route: 042
     Dates: start: 20100729, end: 20100729
  2. BEVACIZUMAB (BEVACIZUMAB) [Concomitant]
  3. CHLORPHENIRAMINE MALEATE [Concomitant]
  4. DEXAMETHASONE [Concomitant]
  5. RANITIDINE [Concomitant]

REACTIONS (2)
  - DYSPNOEA [None]
  - LOSS OF CONSCIOUSNESS [None]
